FAERS Safety Report 25741776 (Version 1)
Quarter: 2025Q3

REPORT INFORMATION
  Report Type: Spontaneous
  Country: EU (occurrence: EU)
  Receive Date: 20250829
  Receipt Date: 20250829
  Transmission Date: 20251021
  Serious: Yes (Other)
  Sender: VERTEX
  Company Number: None

PATIENT
  Age: 26 Year
  Sex: Female
  Weight: 54 kg

DRUGS (2)
  1. ELEXACAFTOR\IVACAFTOR\TEZACAFTOR [Suspect]
     Active Substance: ELEXACAFTOR\IVACAFTOR\TEZACAFTOR
     Indication: Cystic fibrosis
     Dosage: 2 TABS (75 MG IVA/ 50 MG TEZA/ 100 MG ELEXA); QD
     Route: 048
     Dates: start: 20230831, end: 20230905
  2. KALYDECO [Suspect]
     Active Substance: IVACAFTOR
     Indication: Cystic fibrosis
     Dosage: ONE TABLET, QD
     Route: 048
     Dates: start: 20230831, end: 20230905

REACTIONS (1)
  - Hepatic cytolysis [Recovered/Resolved]

NARRATIVE: CASE EVENT DATE: 20230904
